FAERS Safety Report 6343032-9 (Version None)
Quarter: 2009Q3

REPORT INFORMATION
  Report Type: 
  Country: None (occurrence: None)
  Receive Date: 20090908
  Receipt Date: 20090901
  Transmission Date: 20100115
  Serious: Yes (Life-Threatening, Hospitalization)
  Sender: FDA-Public Use
  Company Number: NL-ROCHE-647489

PATIENT
  Sex: Female
  Weight: 66 kg

DRUGS (7)
  1. CAPECITABINE [Suspect]
     Dosage: DATE OF RECENT ADMINISTRATION : 30 JULY 2009. FROM DAY 1 TO DAY 14.  SCHEDULED DOSE: 825MG/M2 2X/DAY
     Route: 048
     Dates: start: 20090724
  2. DOCETAXEL [Suspect]
     Dosage: ON DAY 1.  SCHEDULED DOSE: 75 MG/M2, LAST DOSE RECEIVED PRIOR SAE: 24JUL2009
     Route: 042
     Dates: start: 20090724
  3. ATENOLOL [Concomitant]
     Indication: HYPERTENSION
     Route: 048
     Dates: start: 19980101
  4. CHLOROTHIAZIDE [Concomitant]
     Indication: HYPERTENSION
     Route: 048
     Dates: start: 19980101, end: 20090731
  5. RAMIPRIL [Concomitant]
     Indication: HYPERTENSION
     Route: 048
     Dates: start: 19980101, end: 20090731
  6. MAGNESIUM HYDROXIDE TAB [Concomitant]
     Route: 048
     Dates: start: 20090728, end: 20090730
  7. METOCLOPRAMIDE [Concomitant]
     Indication: NAUSEA
     Dates: start: 20090730

REACTIONS (8)
  - BONE PAIN [None]
  - DEHYDRATION [None]
  - DIARRHOEA [None]
  - FEBRILE NEUTROPENIA [None]
  - HYPOKALAEMIA [None]
  - HYPONATRAEMIA [None]
  - NEUTROPHIL COUNT DECREASED [None]
  - SYNCOPE [None]
